FAERS Safety Report 6031332-1 (Version None)
Quarter: 2008Q4

REPORT INFORMATION
  Report Type: 
  Country: None (occurrence: None)
  Receive Date: 20081224
  Receipt Date: 20080827
  Transmission Date: 20090506
  Serious: Yes (Hospitalization, Other)
  Sender: FDA-Public Use
  Company Number: US-CVT-080076

PATIENT
  Age: 68 Year
  Sex: Female
  Weight: 65 kg

DRUGS (7)
  1. RANEXA [Suspect]
     Indication: ANGINA PECTORIS
     Dosage: 1000 MG, BID, ORAL
     Route: 048
     Dates: start: 20080722, end: 20080728
  2. ALDACTONE [Concomitant]
  3. COREG [Concomitant]
  4. EXTRA STRENGTH TYLENOL [Concomitant]
  5. INSULIN /00030501/ (INSULIN) [Concomitant]
  6. LASIX [Concomitant]
  7. NEURONTIN [Concomitant]

REACTIONS (1)
  - HEPATIC ENCEPHALOPATHY [None]
